FAERS Safety Report 19496084 (Version 2)
Quarter: 2021Q3

REPORT INFORMATION
  Report Type: Spontaneous
  Country: US (occurrence: US)
  Receive Date: 20210706
  Receipt Date: 20210928
  Transmission Date: 20211014
  Serious: Yes (Death, Life-Threatening, Hospitalization)
  Sender: FDA-Public Use
  Company Number: US-DRREDDYS-SPO/USA/21/0137339

PATIENT
  Age: 49 Year
  Sex: Male

DRUGS (2)
  1. REMDESIVIR. [Concomitant]
     Active Substance: REMDESIVIR
     Indication: COVID-19
  2. DEXAMETHASONE SODIUM PHOSPHATE INJECTION, 4 MG/ML [Suspect]
     Active Substance: DEXAMETHASONE SODIUM PHOSPHATE
     Indication: COVID-19

REACTIONS (6)
  - Cytomegalovirus infection [Fatal]
  - Acidosis [Fatal]
  - Sepsis [Fatal]
  - Hypoxia [Fatal]
  - Tuberculosis [Fatal]
  - Latent tuberculosis [Fatal]
